FAERS Safety Report 16832939 (Version 1)
Quarter: 2019Q3

REPORT INFORMATION
  Report Type: Spontaneous
  Country: US (occurrence: US)
  Receive Date: 20190920
  Receipt Date: 20190920
  Transmission Date: 20191005
  Serious: No
  Sender: FDA-Public Use
  Company Number: US-TEVA-2019-US-1110757

PATIENT
  Sex: Female

DRUGS (1)
  1. CLONAZEPAM. [Suspect]
     Active Substance: CLONAZEPAM
     Dosage: TAKING HALF A TABLET FOR ABOUT ONE WEEK
     Route: 065
     Dates: start: 201812

REACTIONS (3)
  - Nausea [Unknown]
  - Insomnia [Unknown]
  - Malaise [Unknown]

NARRATIVE: CASE EVENT DATE: 20190909
